FAERS Safety Report 5514214-0 (Version None)
Quarter: 2007Q4

REPORT INFORMATION
  Report Type: 
  Country: None (occurrence: None)
  Receive Date: 20071031
  Receipt Date: 20070803
  Transmission Date: 20080405
  Serious: Yes (Other)
  Sender: FDA-Public Use
  Company Number: US020943

PATIENT
  Sex: Male
  Weight: 72.5755 kg

DRUGS (5)
  1. PROVIGIL [Suspect]
     Indication: SLEEP APNOEA SYNDROME
     Dosage: 200 MG QD ORAL
     Route: 048
     Dates: start: 20060201
  2. LISINOPRIL [Concomitant]
  3. PROTONIX /01263201/ [Concomitant]
  4. ASPIRIN [Concomitant]
  5. MULTIVITAMIN /00831701/ [Concomitant]

REACTIONS (4)
  - BLOOD CREATININE INCREASED [None]
  - BLOOD UREA INCREASED [None]
  - HYPERTENSION [None]
  - VISUAL ACUITY REDUCED [None]
